FAERS Safety Report 10244711 (Version 2)
Quarter: 2015Q1

REPORT INFORMATION
  Report Type: Spontaneous
  Country: US (occurrence: US)
  Receive Date: 20140618
  Receipt Date: 20150107
  Transmission Date: 20150720
  Serious: Yes (Disabling, Other)
  Sender: FDA-Public Use
  Company Number: US-009507513-1406USA007863

PATIENT
  Sex: Male
  Weight: 81.18 kg

DRUGS (3)
  1. FINASTERIDE. [Suspect]
     Active Substance: FINASTERIDE
     Indication: ANDROGENETIC ALOPECIA
     Dosage: 1 MG, QD
     Route: 048
     Dates: start: 2007, end: 201102
  2. PROPECIA [Suspect]
     Active Substance: FINASTERIDE
     Indication: ANDROGENETIC ALOPECIA
     Dosage: 1 MG, UNK
     Route: 048
     Dates: start: 20071113, end: 201103
  3. FINASTERIDE. [Suspect]
     Active Substance: FINASTERIDE
     Indication: ANDROGENETIC ALOPECIA
     Dosage: 1 MG, QD
     Route: 048
     Dates: start: 2007, end: 201102

REACTIONS (55)
  - Thinking abnormal [Unknown]
  - Prostatic pain [Unknown]
  - Vitamin D decreased [Unknown]
  - Feeling cold [Recovering/Resolving]
  - Apathy [Unknown]
  - Chest pain [Unknown]
  - Peripheral vascular disorder [Unknown]
  - Suicidal ideation [Not Recovered/Not Resolved]
  - Blindness transient [Unknown]
  - Head discomfort [Unknown]
  - White blood cell count decreased [Unknown]
  - Panic attack [Unknown]
  - Drug ineffective [Unknown]
  - Sexual dysfunction [Not Recovered/Not Resolved]
  - Mental impairment [Unknown]
  - Erectile dysfunction [Recovering/Resolving]
  - Ejaculation failure [Not Recovered/Not Resolved]
  - Disturbance in attention [Unknown]
  - Muscle twitching [Unknown]
  - Penile vascular disorder [Unknown]
  - Wrong technique in drug usage process [Unknown]
  - Decreased appetite [Unknown]
  - Urethral obstruction [Unknown]
  - Cognitive disorder [Not Recovered/Not Resolved]
  - Anxiety [Not Recovered/Not Resolved]
  - Fatigue [Unknown]
  - Temperature intolerance [Unknown]
  - Loss of dreaming [Unknown]
  - Nausea [Unknown]
  - Memory impairment [Unknown]
  - Burnout syndrome [Unknown]
  - Drug hypersensitivity [Unknown]
  - Aphasia [Unknown]
  - Testicular atrophy [Unknown]
  - Loss of employment [Not Recovered/Not Resolved]
  - General physical health deterioration [Unknown]
  - Penile size reduced [Unknown]
  - Semen discolouration [Unknown]
  - Dysuria [Recovered/Resolved]
  - Testicular pain [Unknown]
  - Migraine [Unknown]
  - Insomnia [Not Recovered/Not Resolved]
  - Dry skin [Unknown]
  - Partner stress [Not Recovered/Not Resolved]
  - Haematuria [Unknown]
  - Palpitations [Unknown]
  - Cold-stimulus headache [Unknown]
  - Ejaculation disorder [Recovering/Resolving]
  - Depression [Not Recovered/Not Resolved]
  - Loss of libido [Not Recovered/Not Resolved]
  - Ejaculation disorder [Not Recovered/Not Resolved]
  - Emotional distress [Not Recovered/Not Resolved]
  - Hyperhidrosis [Recovered/Resolved]
  - Dizziness [Unknown]
  - Sexual dysfunction [Unknown]

NARRATIVE: CASE EVENT DATE: 2007
